FAERS Safety Report 9278985 (Version 1)
Quarter: 2013Q2

REPORT INFORMATION
  Report Type: Spontaneous
  Country: GB (occurrence: GB)
  Receive Date: 20130508
  Receipt Date: 20130508
  Transmission Date: 20140414
  Serious: Yes (Other)
  Sender: FDA-Public Use
  Company Number: GB-GLAXOSMITHKLINE-B0888491A

PATIENT
  Age: 25 Year
  Sex: Male
  Weight: 64.86 kg

DRUGS (1)
  1. ACYCLOVIR [Suspect]
     Indication: ECZEMA HERPETICUM
     Dosage: 800MG PER DAY
     Route: 048
     Dates: start: 20130121, end: 20130415

REACTIONS (2)
  - Abdominal discomfort [Recovering/Resolving]
  - Bowel movement irregularity [Recovering/Resolving]
